FAERS Safety Report 23789225 (Version 2)
Quarter: 2024Q2

REPORT INFORMATION
  Report Type: Spontaneous
  Country: IT (occurrence: None)
  Receive Date: 20240426
  Receipt Date: 20240506
  Transmission Date: 20240715
  Serious: Yes (Other)
  Sender: FDA-Public Use
  Company Number: 2024A097160

PATIENT
  Age: 23 Year
  Sex: Female

DRUGS (1)
  1. DAPAGLIFLOZIN [Suspect]
     Active Substance: DAPAGLIFLOZIN
     Indication: Left ventricular dysfunction
     Route: 048
     Dates: start: 202309, end: 202404

REACTIONS (7)
  - Haematological malignancy [Unknown]
  - Lymphadenopathy [Unknown]
  - Hypoglycaemia [Unknown]
  - Dyspnoea [Unknown]
  - Night sweats [Not Recovered/Not Resolved]
  - Pyrexia [Not Recovered/Not Resolved]
  - Palpitations [Unknown]

NARRATIVE: CASE EVENT DATE: 20240301
